FAERS Safety Report 15968280 (Version 1)
Quarter: 2019Q1

REPORT INFORMATION
  Report Type: Spontaneous
  Country: JP (occurrence: JP)
  Receive Date: 20190215
  Receipt Date: 20190215
  Transmission Date: 20190418
  Serious: Yes (Life-Threatening, Other)
  Sender: FDA-Public Use
  Company Number: JP-JNJFOC-20190111884

PATIENT
  Age: 86 Year
  Sex: Female
  Weight: 39 kg

DRUGS (9)
  1. CANDESARTAN. [Concomitant]
     Active Substance: CANDESARTAN
     Route: 065
  2. CIBENOL [Concomitant]
     Active Substance: CIFENLINE
     Indication: ARRHYTHMIA
     Route: 065
     Dates: start: 20160307
  3. FERRIC HYDROXIDE POLYMALTOSE COMPLEX [Concomitant]
     Active Substance: IRON POLYMALTOSE
     Indication: ANAEMIA
     Route: 065
     Dates: start: 20160307
  4. REZALTAS [Concomitant]
     Active Substance: AZELNIDIPINE\OLMESARTAN MEDOXOMIL
     Indication: HYPERTENSION
     Route: 065
     Dates: start: 20170324, end: 20181210
  5. SENNOSIDE B [Concomitant]
     Active Substance: SENNOSIDE B
     Indication: CONSTIPATION
     Route: 065
  6. XARELTO [Suspect]
     Active Substance: RIVAROXABAN
     Indication: ATRIAL FIBRILLATION
     Route: 048
     Dates: start: 20161007, end: 20181210
  7. LINZESS [Concomitant]
     Active Substance: LINACLOTIDE
     Indication: CONSTIPATION
     Route: 065
     Dates: start: 20181127, end: 20181210
  8. CINAL [Concomitant]
     Active Substance: ASCORBIC ACID\CALCIUM PANTOTHENATE
     Route: 065
  9. CETIRIZINE HYDROCHLORIDE. [Concomitant]
     Active Substance: CETIRIZINE HYDROCHLORIDE
     Indication: PRURITUS
     Route: 065
     Dates: start: 20180710, end: 20181210

REACTIONS (5)
  - Ureterolithiasis [Unknown]
  - Scar [Unknown]
  - Hydronephrosis [Unknown]
  - Melaena [Recovered/Resolved]
  - Diverticulum intestinal haemorrhagic [Unknown]

NARRATIVE: CASE EVENT DATE: 20181206
